FAERS Safety Report 7873387-5 (Version None)
Quarter: 2011Q4

REPORT INFORMATION
  Report Type: 
  Country: None (occurrence: None)
  Receive Date: 20111030
  Receipt Date: 20110503
  Transmission Date: 20120403
  Serious: No
  Sender: FDA-Public Use
  Company Number: US-AMGEN-USASP2011022924

PATIENT
  Age: 59 Year
  Sex: Female

DRUGS (1)
  1. ENBREL [Suspect]
     Indication: RHEUMATOID ARTHRITIS
     Dosage: 50 MG, QWK
     Dates: start: 20110420, end: 20110420

REACTIONS (5)
  - BUTTERFLY RASH [None]
  - RASH PRURITIC [None]
  - INJECTION SITE INDURATION [None]
  - ARTHROPOD BITE [None]
  - INJECTION SITE HAEMATOMA [None]
